FAERS Safety Report 12263502 (Version 1)
Quarter: 2016Q2

REPORT INFORMATION
  Report Type: Spontaneous
  Country: US (occurrence: US)
  Receive Date: 20160413
  Receipt Date: 20160413
  Transmission Date: 20160815
  Serious: No
  Sender: FDA-Public Use
  Company Number: US-JNJFOC-20160320513

PATIENT
  Age: 60 Year
  Sex: Female
  Weight: 86.18 kg

DRUGS (3)
  1. TYLENOL EXTRA STRENGTH [Suspect]
     Active Substance: ACETAMINOPHEN
     Indication: BACK PAIN
     Route: 048
  2. TYLENOL EXTRA STRENGTH [Suspect]
     Active Substance: ACETAMINOPHEN
     Indication: HEADACHE
     Route: 048
  3. TYLENOL EXTRA STRENGTH [Suspect]
     Active Substance: ACETAMINOPHEN
     Indication: FIBROMYALGIA
     Route: 048

REACTIONS (6)
  - Product physical issue [Recovered/Resolved]
  - Off label use [Recovered/Resolved]
  - Product difficult to swallow [Recovered/Resolved]
  - Dysgeusia [Recovered/Resolved]
  - Retching [Recovered/Resolved]
  - Product use issue [Recovered/Resolved]
